FAERS Safety Report 23779398 (Version 2)
Quarter: 2024Q2

REPORT INFORMATION
  Report Type: Report from Study
  Country: US (occurrence: US)
  Receive Date: 20240424
  Receipt Date: 20240524
  Transmission Date: 20240716
  Serious: Yes (Other)
  Sender: FDA-Public Use
  Company Number: US-AMRYT PHARMACEUTICALS DAC-AEGR006948

PATIENT
  Sex: Female
  Weight: 73.016 kg

DRUGS (5)
  1. MYALEPT [Suspect]
     Active Substance: METRELEPTIN
     Indication: Lipodystrophy acquired
     Dosage: UNK
     Dates: start: 20240202
  2. MYALEPT [Suspect]
     Active Substance: METRELEPTIN
     Dosage: 5 MG (1ML OR 100 UNITS) ONCE DAILY
     Route: 058
  3. GABAPENTIN [Concomitant]
     Active Substance: GABAPENTIN
     Indication: Product used for unknown indication
     Dosage: 300 MG CAPSULE
  4. LEXAPRO [Concomitant]
     Active Substance: ESCITALOPRAM OXALATE
     Indication: Product used for unknown indication
     Dosage: 10 MG TABLET
  5. ALPRAZOLAM [Concomitant]
     Active Substance: ALPRAZOLAM
     Indication: Product used for unknown indication
     Dosage: 0.50 MG TABLET

REACTIONS (24)
  - Diabetes mellitus [Unknown]
  - Gingival recession [Unknown]
  - Impaired healing [Unknown]
  - Alopecia [Unknown]
  - Fat tissue decreased [Unknown]
  - Gastrooesophageal reflux disease [Unknown]
  - Leptin level increased [Unknown]
  - Insomnia [Unknown]
  - Fat tissue increased [Unknown]
  - Blood triglycerides increased [Unknown]
  - Glycosylated haemoglobin increased [Unknown]
  - Hormone level abnormal [Unknown]
  - Fungal infection [Unknown]
  - Inflammation [Unknown]
  - Accident [Unknown]
  - Blood calcium increased [Unknown]
  - Asthenia [Unknown]
  - Libido disorder [Unknown]
  - Depressed mood [Unknown]
  - Pancreatic disorder [Unknown]
  - Liver disorder [Unknown]
  - Hypersomnia [Unknown]
  - Fatigue [Unknown]
  - Drug ineffective [Unknown]
